FAERS Safety Report 7049264-9 (Version None)
Quarter: 2010Q4

REPORT INFORMATION
  Report Type: 
  Country: None (occurrence: None)
  Receive Date: 20101018
  Receipt Date: 20101004
  Transmission Date: 20110411
  Serious: Yes (Other)
  Sender: FDA-Public Use
  Company Number: IE-ROCHE-723772

PATIENT
  Sex: Female

DRUGS (26)
  1. BONIVA [Suspect]
     Indication: OSTEOPOROSIS
     Route: 048
     Dates: start: 20061101, end: 20100701
  2. IMURAN [Suspect]
     Indication: RHEUMATOID ARTHRITIS
     Route: 048
  3. DELTACORTRIL [Concomitant]
     Indication: RHEUMATOID ARTHRITIS
     Dosage: FREQUENCY: ALTERNATE DAY. CAN BE ON HIGHER DOSE AT TIMES.
     Route: 048
  4. CRESTOR [Concomitant]
     Route: 048
  5. OSTEOEZE [Concomitant]
     Indication: OSTEOPOROSIS
     Dosage: DRUG NAME: OSTEOLE SACHETS, FREQENCY DAILY
     Route: 048
  6. XYMELIN [Concomitant]
     Indication: PAIN
     Route: 048
  7. SIMBICORT [Concomitant]
     Indication: ASTHMA
     Route: 055
  8. BRICANYL [Concomitant]
     Indication: ASTHMA
     Route: 055
  9. MACRODANTIN [Concomitant]
  10. PAROXETINE HCL [Concomitant]
     Dosage: DRUG REPORTED AS PAROX
  11. AMITRIPTYLINE [Concomitant]
     Dosage: EVERY NIGHT
  12. TEARS NATURALE [Concomitant]
     Dosage: 1 AS NEEDED
  13. IDEOS [Concomitant]
     Dosage: CHEWABLE TABLET ONCE A DAY
  14. TRADOL [Concomitant]
  15. VAGIFEM [Concomitant]
  16. LYRICA [Concomitant]
     Dosage: EVERY NIGHT
  17. ELTROXIN [Concomitant]
  18. HALF-INDERAL LA [Concomitant]
  19. CALMAX [Concomitant]
  20. PANTOPRAZOLE SODIUM [Concomitant]
     Dosage: DRUG REPORTED AS PANTUP
  21. MYSOLINE [Concomitant]
  22. EPANUTIN [Concomitant]
  23. BRICANYL TURBOHALER [Concomitant]
     Dosage: 100 DOSE INHALER 1 QID AS NEEDED
  24. MYCOSTATIN [Concomitant]
     Dosage: MIX 100000 U 1 BETWEEN MEALS 4 TIMES DAILY
  25. PROTELOS [Concomitant]
     Dosage: 1 SACHETS AT NIGHT
  26. SERETIDE [Concomitant]
     Dosage: DRUG REPORTED AS SERETIDE EVOHALER 250 MCG 120 DOSE 2 TWICE DAILY

REACTIONS (3)
  - IMPAIRED HEALING [None]
  - PAIN IN JAW [None]
  - TOOTH ABSCESS [None]
